FAERS Safety Report 21592678 (Version 1)
Quarter: 2022Q4

REPORT INFORMATION
  Report Type: Spontaneous
  Country: US (occurrence: US)
  Receive Date: 20221114
  Receipt Date: 20221114
  Transmission Date: 20230113
  Serious: No
  Sender: FDA-Public Use
  Company Number: US-Calliditas-2022CAL00463

PATIENT
  Age: 72 Year
  Sex: Male

DRUGS (1)
  1. TARPEYO [Suspect]
     Active Substance: BUDESONIDE
     Indication: IgA nephropathy
     Dosage: 16 MG (4 MG CAPSULES) ONCE DAILY
     Route: 048
     Dates: start: 20221007, end: 20221018

REACTIONS (6)
  - Hypertension [Recovered/Resolved]
  - Headache [Unknown]
  - Dyspepsia [Unknown]
  - Vision blurred [Unknown]
  - Dizziness [Unknown]
  - Decreased activity [Unknown]
